FAERS Safety Report 9698209 (Version 1)
Quarter: 2013Q4

REPORT INFORMATION
  Report Type: Spontaneous
  Country: US (occurrence: US)
  Receive Date: 20131120
  Receipt Date: 20131120
  Transmission Date: 20140711
  Serious: Yes (Other)
  Sender: FDA-Public Use
  Company Number: US-BRISTOL-MYERS SQUIBB COMPANY-19798388

PATIENT
  Age: 54 Year
  Sex: Male
  Weight: 95.24 kg

DRUGS (2)
  1. ELIQUIS [Suspect]
     Indication: ATRIAL FIBRILLATION
     Dates: start: 201306
  2. ELIQUIS [Suspect]
     Indication: ATRIAL FLUTTER
     Dates: start: 201306

REACTIONS (4)
  - Arrhythmia [Unknown]
  - Diarrhoea [Unknown]
  - Blood urine present [Unknown]
  - Blood creatinine increased [Unknown]
